FAERS Safety Report 7312429-2 (Version None)
Quarter: 2011Q1

REPORT INFORMATION
  Report Type: 
  Country: None (occurrence: None)
  Receive Date: 20110214
  Receipt Date: 20110201
  Transmission Date: 20110831
  Serious: Yes (Life-Threatening, Hospitalization, Other)
  Sender: FDA-Public Use
  Company Number: MPS1-1000430

PATIENT
  Age: 19 Month
  Sex: Male
  Weight: 12 kg

DRUGS (11)
  1. NICARDIPINE HCL [Concomitant]
  2. URSOLVAN-200 (URSODEOXYCHOLIC ACID) [Concomitant]
  3. CYCLOSPORINE [Concomitant]
  4. BACTRIM [Concomitant]
  5. ALDURAZYME [Suspect]
     Indication: MUCOPOLYSACCHARIDOSIS I
     Dosage: 100 U/KG, 1X/W, INTRAVENOUS
     Route: 042
     Dates: start: 20101015
  6. ENALAPRIL MALEATE [Concomitant]
  7. PREDNISOLONE [Concomitant]
  8. ORACILLIN (PHENOXYMETHYLEPICILLIN POTASSIUM) [Concomitant]
  9. ZOFRAN [Concomitant]
  10. PHOSPHORAL (SODIUM PHOSPHATE DIBASIC, SODIUM PHOSPHATE MONOBASIC (ANHY [Concomitant]
  11. ACYCLOVIR [Concomitant]

REACTIONS (5)
  - TACHYCARDIA [None]
  - MOANING [None]
  - RASH MORBILLIFORM [None]
  - INFUSION RELATED REACTION [None]
  - OXYGEN SATURATION DECREASED [None]
